FAERS Safety Report 15591283 (Version 1)
Quarter: 2018Q4

REPORT INFORMATION
  Report Type: Spontaneous
  Country: US (occurrence: US)
  Receive Date: 20181101
  Receipt Date: 20181101
  Transmission Date: 20190205
  Serious: No
  Sender: FDA-Public Use
  Company Number: None

PATIENT
  Age: 57 Year
  Sex: Male
  Weight: 72 kg

DRUGS (2)
  1. CEFTRIAXONE. [Suspect]
     Active Substance: CEFTRIAXONE
     Route: 042
     Dates: start: 20181012, end: 20181030
  2. DAPTOMYCIN 500MG TEVA [Suspect]
     Active Substance: DAPTOMYCIN
     Route: 042
     Dates: start: 20181012, end: 20181030

REACTIONS (1)
  - Blood creatine phosphokinase increased [None]

NARRATIVE: CASE EVENT DATE: 20181030
